FAERS Safety Report 9210895 (Version 1)
Quarter: 2013Q2

REPORT INFORMATION
  Report Type: Spontaneous
  Country: GB (occurrence: GB)
  Receive Date: 20130404
  Receipt Date: 20130404
  Transmission Date: 20140414
  Serious: Yes (Life-Threatening, Other)
  Sender: FDA-Public Use
  Company Number: GB-ROXANE LABORATORIES, INC.-2013-RO-00429RO

PATIENT
  Age: 41 Year
  Sex: Male

DRUGS (6)
  1. CITALOPRAM [Suspect]
     Indication: DEPRESSION
  2. QUETIAPINE FUMARATE [Suspect]
     Indication: BIPOLAR DISORDER
  3. LITHIUM CARBONATE [Suspect]
     Indication: BIPOLAR DISORDER
  4. VALPROATE [Suspect]
     Indication: BIPOLAR DISORDER
  5. FLUOXETINE [Suspect]
     Indication: DEPRESSION
  6. LAMOTRIGINE [Concomitant]

REACTIONS (6)
  - Suicide attempt [Recovered/Resolved]
  - Epilepsy [Not Recovered/Not Resolved]
  - Bipolar disorder [Not Recovered/Not Resolved]
  - Migraine [Not Recovered/Not Resolved]
  - Adverse event [Unknown]
  - Eczema [Not Recovered/Not Resolved]
